FAERS Safety Report 26140163 (Version 1)
Quarter: 2025Q4

REPORT INFORMATION
  Report Type: Report from Study
  Country: US (occurrence: US)
  Receive Date: 20251210
  Receipt Date: 20251210
  Transmission Date: 20260118
  Serious: Yes (Other)
  Sender: MALLINCKRODT
  Company Number: US-MALLINCKRODT-MNK202507626

PATIENT
  Age: 67 Year
  Sex: Female

DRUGS (3)
  1. CORTICOTROPIN [Suspect]
     Active Substance: CORTICOTROPIN
     Indication: Sympathetic ophthalmia
     Dosage: UNKNOWN
  2. CORTICOTROPIN [Suspect]
     Active Substance: CORTICOTROPIN
     Indication: Rheumatoid arthritis
  3. REMICADE [Concomitant]
     Active Substance: INFLIXIMAB
     Dosage: UNK

REACTIONS (6)
  - Neuropathy peripheral [Unknown]
  - Fall [Unknown]
  - Head injury [Unknown]
  - Tooth fracture [Unknown]
  - Glaucoma [Unknown]
  - Lip injury [Unknown]

NARRATIVE: CASE EVENT DATE: 20251021
